FAERS Safety Report 10465137 (Version 1)
Quarter: 2014Q3

REPORT INFORMATION
  Report Type: Spontaneous
  Country: US (occurrence: US)
  Receive Date: 20140919
  Receipt Date: 20140919
  Transmission Date: 20150326
  Serious: No
  Sender: FDA-Public Use
  Company Number: US-BAUSCH-SYM-2014-22000

PATIENT
  Age: 72 Year
  Sex: Female

DRUGS (2)
  1. CERAVE AM FACIAL MOISTURIZING [Suspect]
     Active Substance: HOMOSALATE\OCTINOXATE\OCTOCRYLENE\ZINC OXIDE
     Indication: THERAPEUTIC SKIN CARE TOPICAL
     Route: 061
     Dates: start: 201405
  2. ATRALIN [Suspect]
     Active Substance: TRETINOIN
     Indication: THERAPEUTIC SKIN CARE TOPICAL
     Dosage: ONCE AT NIGHT, DAILY
     Route: 061
     Dates: start: 201405

REACTIONS (1)
  - Acne [Unknown]
